FAERS Safety Report 4533678-2 (Version None)
Quarter: 2004Q4

REPORT INFORMATION
  Report Type: 
  Country: None (occurrence: None)
  Receive Date: 20041221
  Receipt Date: 20041022
  Transmission Date: 20050328
  Serious: Yes (Death, Hospitalization)
  Sender: FDA-Public Use
  Company Number: JPKYO-S-20040035

PATIENT
  Age: 74 Year
  Sex: Male

DRUGS (4)
  1. NAVELBINE [Suspect]
     Indication: NON-SMALL CELL LUNG CANCER STAGE IV
     Dosage: 25MGM2 PER DAY
     Route: 042
     Dates: start: 20040909, end: 20040916
  2. CISPLATIN [Suspect]
     Indication: NON-SMALL CELL LUNG CANCER STAGE IV
     Dates: start: 20040909, end: 20040909
  3. DECADRON [Concomitant]
     Dates: start: 20040810, end: 20040909
  4. KYTRIL [Concomitant]
     Dates: start: 20040909, end: 20040911

REACTIONS (6)
  - ACUTE RESPIRATORY FAILURE [None]
  - CHEST PAIN [None]
  - DYSPNOEA [None]
  - PANCYTOPENIA [None]
  - PNEUMONIA [None]
  - PYREXIA [None]
